FAERS Safety Report 6975029-X (Version None)
Quarter: 2010Q3

REPORT INFORMATION
  Report Type: 
  Country: None (occurrence: None)
  Receive Date: 20100910
  Receipt Date: 20090121
  Transmission Date: 20110219
  Serious: No
  Sender: FDA-Public Use
  Company Number: US-WYE-H07813709

PATIENT
  Sex: Male

DRUGS (1)
  1. PRISTIQ [Suspect]
     Indication: DEPRESSION
     Dosage: UNKNOWN
     Route: 048
     Dates: start: 20090114

REACTIONS (5)
  - DECREASED APPETITE [None]
  - DIARRHOEA [None]
  - HYPERSOMNIA [None]
  - LETHARGY [None]
  - WEIGHT DECREASED [None]
